FAERS Safety Report 9049086 (Version 4)
Quarter: 2013Q3

REPORT INFORMATION
  Report Type: Report from Study
  Country: CA (occurrence: CA)
  Receive Date: 20130205
  Receipt Date: 20130705
  Transmission Date: 20140515
  Serious: Yes (Other)
  Sender: FDA-Public Use
  Company Number: CA-ROCHE-1186000

PATIENT
  Sex: Female
  Weight: 56.2 kg

DRUGS (8)
  1. XELODA [Suspect]
     Indication: BREAST CANCER METASTATIC
     Route: 048
     Dates: start: 20120718, end: 20130116
  2. HERCEPTIN [Suspect]
     Indication: BREAST CANCER METASTATIC
     Route: 042
     Dates: start: 201108, end: 20120502
  3. HERCEPTIN [Suspect]
     Route: 065
     Dates: start: 201204, end: 201207
  4. HERCEPTIN [Suspect]
     Route: 065
     Dates: start: 20130207, end: 20130502
  5. NAB-PACLITAXEL [Suspect]
     Indication: BREAST CANCER METASTATIC
     Route: 065
  6. TYKERB [Concomitant]
     Indication: BREAST CANCER METASTATIC
  7. XGEVA [Concomitant]
     Route: 065
  8. NAVELBINE [Concomitant]

REACTIONS (4)
  - Neoplasm [Unknown]
  - Drug ineffective [Unknown]
  - Disease progression [Unknown]
  - Therapeutic response decreased [Unknown]
